FAERS Safety Report 9895573 (Version 1)
Quarter: 2014Q1

REPORT INFORMATION
  Report Type: Spontaneous
  Country: US (occurrence: US)
  Receive Date: 20140213
  Receipt Date: 20140213
  Transmission Date: 20141002
  Serious: No
  Sender: FDA-Public Use
  Company Number: US-BRISTOL-MYERS SQUIBB COMPANY-17375015

PATIENT
  Age: 49 Year
  Sex: Male
  Weight: 117.91 kg

DRUGS (5)
  1. ABATACEPT SUBQ INJECTION 125MG/ML [Suspect]
     Route: 058
  2. HALDOL [Concomitant]
     Dosage: 1DF-5MG/ML INJ
  3. LAMICTAL [Concomitant]
     Dosage: TAB
  4. OXYCODONE [Concomitant]
     Dosage: TAB
  5. PROZAC [Concomitant]
     Dosage: CAP

REACTIONS (1)
  - Urinary tract infection [Unknown]
